FAERS Safety Report 6896582-0 (Version None)
Quarter: 2010Q3

REPORT INFORMATION
  Report Type: 
  Country: None (occurrence: None)
  Receive Date: 20100729
  Receipt Date: 20100719
  Transmission Date: 20110219
  Serious: Yes (Hospitalization)
  Sender: FDA-Public Use
  Company Number: 2010EU003594

PATIENT
  Age: 8 Year
  Sex: Female
  Weight: 19.1 kg

DRUGS (1)
  1. PROGRAF [Suspect]
     Indication: PROPHYLAXIS AGAINST TRANSPLANT REJECTION
     Dates: end: 20100523

REACTIONS (6)
  - ALANINE AMINOTRANSFERASE INCREASED [None]
  - ASPARTATE AMINOTRANSFERASE INCREASED [None]
  - BLOOD ALKALINE PHOSPHATASE INCREASED [None]
  - EOSINOPHILIC OESOPHAGITIS [None]
  - GAMMA-GLUTAMYLTRANSFERASE INCREASED [None]
  - OESOPHAGEAL CANDIDIASIS [None]
